FAERS Safety Report 5395643-5 (Version None)
Quarter: 2007Q3

REPORT INFORMATION
  Report Type: 
  Country: None (occurrence: None)
  Receive Date: 20070724
  Receipt Date: 20070720
  Transmission Date: 20080115
  Serious: Yes (Death)
  Sender: FDA-Public Use
  Company Number: KR-GENENTECH-244819

PATIENT
  Age: 73 Year
  Sex: Male

DRUGS (1)
  1. METALYSE [Suspect]
     Indication: ACUTE MYOCARDIAL INFARCTION
     Dosage: 35 MG, UNK
     Dates: start: 20040930

REACTIONS (2)
  - DEATH [None]
  - INFARCTION [None]
